FAERS Safety Report 8087091-4 (Version None)
Quarter: 2012Q1

REPORT INFORMATION
  Report Type: 
  Country: None (occurrence: None)
  Receive Date: 20120128
  Receipt Date: 20110523
  Transmission Date: 20120608
  Serious: Yes (Hospitalization, Other)
  Sender: FDA-Public Use
  Company Number: US-ABBOTT-11P-163-0727879-00

PATIENT
  Sex: Female
  Weight: 59.02 kg

DRUGS (16)
  1. LISINOPRIL [Concomitant]
     Indication: PRODUCT USED FOR UNKNOWN INDICATION
  2. SYNTHROID [Concomitant]
     Indication: THYROID DISORDER
  3. FOLIC ACID [Concomitant]
     Indication: PRODUCT USED FOR UNKNOWN INDICATION
  4. HUMIRA [Suspect]
     Route: 058
     Dates: start: 20110401
  5. METHOTREXATE [Concomitant]
     Indication: RHEUMATOID ARTHRITIS
     Dosage: 1 IN 1 WKS, OFF MEDICATION FOR 2 WEEKS
     Dates: start: 20110401
  6. HYDROCODONE BITARTRATE [Concomitant]
     Indication: PAIN
  7. ASPIRIN [Concomitant]
     Indication: PRODUCT USED FOR UNKNOWN INDICATION
     Dosage: TAKES EVERY OTHER DAY
     Route: 048
  8. LOVAZA [Concomitant]
     Indication: PRODUCT USED FOR UNKNOWN INDICATION
  9. METHOTREXATE [Concomitant]
     Dates: end: 20110401
  10. HUMIRA [Suspect]
     Indication: RHEUMATOID ARTHRITIS
     Route: 058
     Dates: end: 20110401
  11. GARLIC [Concomitant]
     Indication: PRODUCT USED FOR UNKNOWN INDICATION
  12. GABAPENTIN [Concomitant]
     Indication: PRODUCT USED FOR UNKNOWN INDICATION
  13. CIPROFLOXACIN [Suspect]
     Indication: CELLULITIS
     Route: 048
     Dates: start: 20110401, end: 20110401
  14. METFFORMIN HYDROCHLORIDE [Concomitant]
     Indication: TYPE 2 DIABETES MELLITUS
     Dosage: TAKES HALF TABLET TWICE DAILY
  15. CALCIUM [Concomitant]
     Indication: PRODUCT USED FOR UNKNOWN INDICATION
  16. METOPROLOL TARTRATE [Concomitant]
     Indication: PRODUCT USED FOR UNKNOWN INDICATION

REACTIONS (4)
  - CELLULITIS [None]
  - PAIN IN EXTREMITY [None]
  - PERIPHERAL COLDNESS [None]
  - RHEUMATOID ARTHRITIS [None]
